FAERS Safety Report 10584016 (Version 2)
Quarter: 2014Q4

REPORT INFORMATION
  Report Type: Report from Study
  Country: TR (occurrence: TR)
  Receive Date: 20141114
  Receipt Date: 20141219
  Transmission Date: 20150529
  Serious: Yes (Death)
  Sender: FDA-Public Use
  Company Number: TR-CELGENE-TUR-2014111904

PATIENT
  Age: 55 Year
  Sex: Female
  Weight: 64 kg

DRUGS (8)
  1. ZOLEDRONIC ACID [Concomitant]
     Active Substance: ZOLEDRONIC ACID
     Indication: PLASMA CELL MYELOMA
     Dosage: 40 MILLIGRAM
     Route: 065
     Dates: start: 201304
  2. DEXAMETHASONE. [Concomitant]
     Active Substance: DEXAMETHASONE
     Indication: PLASMA CELL MYELOMA
     Route: 065
     Dates: start: 20140526
  3. HIBOR [Concomitant]
     Active Substance: BEMIPARIN SODIUM
     Indication: CHRONIC KIDNEY DISEASE
     Dosage: /0.2 ML
     Route: 065
     Dates: start: 201301
  4. REVLIMID [Suspect]
     Active Substance: LENALIDOMIDE
     Indication: PLASMA CELL MYELOMA
     Dosage: 5 MILLIGRAM
     Route: 048
     Dates: start: 20140526
  5. EPOBEL [Concomitant]
     Indication: CHRONIC KIDNEY DISEASE
     Dosage: 4 MILLIGRAM
     Route: 065
     Dates: start: 201304
  6. PULCET [Concomitant]
     Active Substance: PANTOPRAZOLE SODIUM
     Indication: GASTRITIS PROPHYLAXIS
     Route: 065
     Dates: start: 201405
  7. CALCIUM ACETATE. [Concomitant]
     Active Substance: CALCIUM ACETATE
     Indication: CHRONIC KIDNEY DISEASE
     Dosage: 3000 IU (INTERNATIONAL UNIT)
     Route: 065
     Dates: start: 201304
  8. ACICLOVIR [Concomitant]
     Active Substance: ACYCLOVIR
     Indication: PROPHYLAXIS
     Dosage: 40 MILLIGRAM
     Route: 065
     Dates: start: 201406

REACTIONS (4)
  - Pleural effusion [Fatal]
  - Chronic kidney disease [Fatal]
  - Cardiac arrest [Fatal]
  - Pneumonia [Fatal]

NARRATIVE: CASE EVENT DATE: 20141010
